FAERS Safety Report 13693248 (Version 3)
Quarter: 2017Q3

REPORT INFORMATION
  Report Type: Report from Study
  Country: US (occurrence: US)
  Receive Date: 20170627
  Receipt Date: 20170724
  Transmission Date: 20171127
  Serious: Yes (Hospitalization)
  Sender: FDA-Public Use
  Company Number: US-BIOGEN-2017BI00421685

PATIENT
  Sex: Female

DRUGS (1)
  1. ZINBRYTA [Suspect]
     Active Substance: DACLIZUMAB
     Indication: MULTIPLE SCLEROSIS
     Route: 058
     Dates: start: 20161125, end: 20170626

REACTIONS (3)
  - Multiple sclerosis relapse [Recovered/Resolved]
  - Blood test abnormal [Recovered/Resolved]
  - Aspartate aminotransferase increased [Recovered/Resolved]
